FAERS Safety Report 25318801 (Version 1)
Quarter: 2025Q2

REPORT INFORMATION
  Report Type: Spontaneous
  Country: JP (occurrence: JP)
  Receive Date: 20250515
  Receipt Date: 20250515
  Transmission Date: 20250716
  Serious: Yes (Other)
  Sender: PFIZER
  Company Number: JP-PFIZER INC-202500099398

PATIENT
  Age: 91 Year
  Sex: Female

DRUGS (4)
  1. RHEUMATREX [Suspect]
     Active Substance: METHOTREXATE SODIUM
     Indication: Rheumatoid arthritis
     Route: 048
  2. AZULFIDINE EN-TABS [Suspect]
     Active Substance: SULFASALAZINE
     Indication: Rheumatoid arthritis
  3. PROGRAF [Suspect]
     Active Substance: TACROLIMUS
  4. SULFADIAZINE [Suspect]
     Active Substance: SULFADIAZINE

REACTIONS (3)
  - Renal impairment [Unknown]
  - Cognitive disorder [Unknown]
  - Pain [Unknown]
